FAERS Safety Report 19349082 (Version 1)
Quarter: 2021Q2

REPORT INFORMATION
  Report Type: Spontaneous
  Country: US (occurrence: US)
  Receive Date: 20210531
  Receipt Date: 20210531
  Transmission Date: 20210717
  Serious: Yes (Death, Other)
  Sender: FDA-Public Use
  Company Number: US-PURDUE-USA-2020-0192139

PATIENT
  Age: 34 Year
  Sex: Male

DRUGS (5)
  1. TRAMADOL CR TABLETS (RHODES 21?745) [Suspect]
     Active Substance: TRAMADOL
     Indication: PAIN
     Dosage: UNK
     Route: 048
  2. CARISOPRODOL. [Suspect]
     Active Substance: CARISOPRODOL
     Indication: PAIN
     Dosage: UNK
     Route: 065
  3. ALPRAZOLAM. [Suspect]
     Active Substance: ALPRAZOLAM
     Indication: PAIN
     Route: 065
  4. DIAZEPAM. [Suspect]
     Active Substance: DIAZEPAM
     Indication: PAIN
     Dosage: UNK
     Route: 065
  5. OXYCODONE HYDROCHLORIDE (SIMILAR TO NDA 22?272) [Suspect]
     Active Substance: OXYCODONE HYDROCHLORIDE
     Indication: PAIN
     Dosage: UNK
     Route: 048

REACTIONS (3)
  - Toxicity to various agents [Fatal]
  - Drug dependence [Unknown]
  - Overdose [Fatal]

NARRATIVE: CASE EVENT DATE: 20100202
